FAERS Safety Report 9832090 (Version 2)
Quarter: 2014Q1

REPORT INFORMATION
  Report Type: Report from Study
  Country: US (occurrence: US)
  Receive Date: 20140121
  Receipt Date: 20140121
  Transmission Date: 20141002
  Serious: No
  Sender: FDA-Public Use
  Company Number: PHEH2013US018563

PATIENT
  Age: 64 Year
  Sex: Female
  Weight: 68.27 kg

DRUGS (9)
  1. TASIGNA [Suspect]
     Indication: CHRONIC MYELOID LEUKAEMIA
     Dosage: 400 MG, Q12H
     Route: 048
     Dates: start: 20110214
  2. BABY ASPIRIN [Concomitant]
     Indication: CARDIAC DISORDER
     Dosage: 81 MG, QD
     Dates: start: 2005
  3. POTASSIUM [Concomitant]
  4. CALCIUM [Concomitant]
  5. VITAMIN D [Concomitant]
  6. FOLIC ACID [Concomitant]
  7. MAGNESIUM [Concomitant]
     Indication: SUPPLEMENTATION THERAPY
     Dosage: 250 MG, TID
     Dates: start: 2008
  8. MULTIVITAMIN [Concomitant]
  9. MELATONIN [Concomitant]
     Indication: INSOMNIA
     Dosage: UNK UKN, QD
     Dates: start: 2008

REACTIONS (2)
  - Pruritus [Not Recovered/Not Resolved]
  - Blood cholesterol increased [Unknown]
